FAERS Safety Report 15982237 (Version 1)
Quarter: 2019Q1

REPORT INFORMATION
  Report Type: Spontaneous
  Country: IN (occurrence: IN)
  Receive Date: 20190219
  Receipt Date: 20190219
  Transmission Date: 20190418
  Serious: Yes (Hospitalization, Other)
  Sender: FDA-Public Use
  Company Number: IN-CASPER PHARMA LLC-2019CAS000053

PATIENT
  Age: 36 Year
  Sex: Female

DRUGS (1)
  1. PENICILLIN G BENZATHINE [Suspect]
     Active Substance: PENICILLIN G BENZATHINE
     Indication: RHEUMATIC HEART DISEASE
     Dosage: 1200000 INTERNATIONAL UNIT
     Route: 030

REACTIONS (1)
  - Embolia cutis medicamentosa [Unknown]
